FAERS Safety Report 11615294 (Version 1)
Quarter: 2015Q4

REPORT INFORMATION
  Report Type: Report from Study
  Country: BR (occurrence: BR)
  Receive Date: 20151009
  Receipt Date: 20151009
  Transmission Date: 20160304
  Serious: Yes (Hospitalization)
  Sender: FDA-Public Use
  Company Number: PHHY2015BR119886

PATIENT
  Sex: Female
  Weight: 43 kg

DRUGS (2)
  1. FORASEQ [Suspect]
     Active Substance: BUDESONIDE\FORMOTEROL FUMARATE
     Indication: ASTHMA
     Dosage: 3 OR 4 DF, QD (2 YEARS AGO)
     Route: 065
  2. SEEBRI BREEZHALER [Suspect]
     Active Substance: GLYCOPYRROLATE
     Indication: PRODUCT USED FOR UNKNOWN INDICATION
     Route: 065

REACTIONS (7)
  - Cardiac disorder [Unknown]
  - Asthma [Unknown]
  - Malaise [Unknown]
  - Concomitant disease aggravated [Unknown]
  - Anaemia [Unknown]
  - Dyspnoea [Unknown]
  - Lung disorder [Unknown]
